FAERS Safety Report 9742862 (Version 1)
Quarter: 2013Q4

REPORT INFORMATION
  Report Type: Spontaneous
  Country: BR (occurrence: BR)
  Receive Date: 20131210
  Receipt Date: 20131210
  Transmission Date: 20140711
  Serious: Yes (Other)
  Sender: FDA-Public Use
  Company Number: BR-PFIZER INC-2013347847

PATIENT
  Age: 69 Year
  Sex: Female
  Weight: 74 kg

DRUGS (5)
  1. XALATAN [Suspect]
     Indication: GLAUCOMA
     Dosage: 1 DROP IN EACH EYE (3 UG), 1X/DAY
     Route: 047
     Dates: start: 20111204
  2. SYSTANE [Concomitant]
     Indication: EYE PAIN
     Dosage: 1 DROP IN BOTH VISIONS (WHEN FEELING BURNING AND PAINS IN VISIONS)
     Dates: start: 20111204
  3. SYSTANE [Concomitant]
     Indication: EYE IRRITATION
  4. EPITEGEL [Concomitant]
     Indication: EYE PAIN
     Dosage: 1 DROP IN BOTH VISIONS (WHEN FEELING BURNING AND PAINS IN VISIONS)
     Dates: start: 20111204
  5. EPITEGEL [Concomitant]
     Indication: EYE IRRITATION

REACTIONS (3)
  - Eye haemorrhage [Not Recovered/Not Resolved]
  - Visual acuity reduced [Unknown]
  - Eye irritation [Unknown]
